FAERS Safety Report 9726529 (Version 1)
Quarter: 2013Q4

REPORT INFORMATION
  Report Type: Spontaneous
  Country: NL (occurrence: NL)
  Receive Date: 20131203
  Receipt Date: 20131203
  Transmission Date: 20140711
  Serious: Yes (Hospitalization)
  Sender: FDA-Public Use
  Company Number: NL-ROXANE LABORATORIES, INC.-2013-RO-01883RO

PATIENT
  Age: 36 Year
  Sex: Male

DRUGS (5)
  1. QUETIAPINE FUMARATE [Suspect]
     Dosage: 600 MG
  2. VENLAFAXINE [Concomitant]
     Dosage: 225 MG
  3. PROMETHAZINE [Concomitant]
     Dosage: 25 MG
  4. LORAZEPAM [Concomitant]
     Dosage: 1 MG
  5. TEMAZEPAM [Concomitant]
     Dosage: 20 MG

REACTIONS (2)
  - Blood cortisol decreased [Recovered/Resolved]
  - Hypothyroidism [Recovered/Resolved]
